FAERS Safety Report 17201676 (Version 1)
Quarter: 2019Q4

REPORT INFORMATION
  Report Type: Report from Study
  Country: US (occurrence: US)
  Receive Date: 20191226
  Receipt Date: 20191226
  Transmission Date: 20200122
  Serious: Yes (Hospitalization)
  Sender: FDA-Public Use
  Company Number: US-MYLANLABS-2019M1081294

PATIENT
  Age: 17 Year
  Sex: Female
  Weight: 57.5 kg

DRUGS (8)
  1. SYMDEKO [Concomitant]
     Active Substance: IVACAFTOR\TEZACAFTOR
     Indication: CYSTIC FIBROSIS
     Dosage: 1 DOSAGE FORM, BID
     Route: 048
     Dates: start: 20181201
  2. TOBI PODHALER [Suspect]
     Active Substance: TOBRAMYCIN
     Indication: INFECTIVE PULMONARY EXACERBATION OF CYSTIC FIBROSIS
     Dosage: 112 MILLIGRAM, BID
     Dates: start: 20130626
  3. PREVACID [Concomitant]
     Active Substance: LANSOPRAZOLE
     Indication: GASTROOESOPHAGEAL REFLUX PROPHYLAXIS
     Dosage: 30 MILLIGRAM, QD
     Route: 048
     Dates: start: 20120731
  4. NASONEX [Concomitant]
     Active Substance: MOMETASONE FUROATE
     Indication: CHRONIC SINUSITIS
     Dosage: 200 MICROGRAM, QD
     Route: 045
     Dates: start: 20150507
  5. ZYRTEC [Concomitant]
     Active Substance: CETIRIZINE HYDROCHLORIDE
     Indication: CHRONIC SINUSITIS
     Dosage: 10 MILLIGRAM, QD
     Route: 048
     Dates: start: 20111202
  6. PROVENTIL HFA [Concomitant]
     Active Substance: ALBUTEROL SULFATE
     Indication: ASTHMA
     Dosage: 90 MICROGRAM, BID
     Dates: start: 20190531
  7. CAYSTON [Suspect]
     Active Substance: AZTREONAM
     Indication: INFECTIVE PULMONARY EXACERBATION OF CYSTIC FIBROSIS
     Dosage: 75 MILLIGRAM, TID
     Dates: start: 20150904, end: 20190816
  8. MOTRIN [Concomitant]
     Active Substance: IBUPROFEN
     Indication: CYSTIC FIBROSIS LUNG
     Dosage: 1400 MILLIGRAM, QD
     Route: 048
     Dates: start: 20110316

REACTIONS (1)
  - Infective pulmonary exacerbation of cystic fibrosis [Recovered/Resolved]

NARRATIVE: CASE EVENT DATE: 20190816
